FAERS Safety Report 24811306 (Version 1)
Quarter: 2025Q1

REPORT INFORMATION
  Report Type: Spontaneous
  Country: US (occurrence: None)
  Receive Date: 20250105
  Receipt Date: 20250105
  Transmission Date: 20250409
  Serious: No
  Sender: FDA-CTU
  Company Number: None

PATIENT
  Age: 47 Year
  Sex: Female
  Weight: 72 kg

DRUGS (1)
  1. MONISTAT 1 COMBINATION PACK [Suspect]
     Active Substance: MICONAZOLE NITRATE
     Indication: Fungal infection
     Dates: start: 20250103, end: 20250103

REACTIONS (3)
  - Vulvovaginal burning sensation [None]
  - Vulvovaginal swelling [None]
  - Vulvovaginal inflammation [None]

NARRATIVE: CASE EVENT DATE: 20250103
